FAERS Safety Report 17969803 (Version 5)
Quarter: 2020Q3

REPORT INFORMATION
  Report Type: Report from Study
  Country: US (occurrence: US)
  Receive Date: 20200701
  Receipt Date: 20200723
  Transmission Date: 20201103
  Serious: Yes (Other)
  Sender: FDA-Public Use
  Company Number: NVSC2020US182582

PATIENT
  Age: 61 Year
  Sex: Female

DRUGS (1)
  1. ENTRESTO [Suspect]
     Active Substance: SACUBITRIL\VALSARTAN
     Indication: CARDIAC FAILURE
     Dosage: 0.5 DF, BID (1/2 49/51 MG IN THE AM AND 1/2 IN THE PM)
     Route: 048
     Dates: start: 20200624

REACTIONS (11)
  - Gastrooesophageal reflux disease [Unknown]
  - Memory impairment [Unknown]
  - Fatigue [Unknown]
  - Gastric ulcer haemorrhage [Unknown]
  - Dyspnoea [Unknown]
  - Product prescribing error [Unknown]
  - Hypotension [Not Recovered/Not Resolved]
  - Dizziness [Unknown]
  - Product dose omission issue [Unknown]
  - Wrong technique in product usage process [Unknown]
  - Heart rate increased [Unknown]

NARRATIVE: CASE EVENT DATE: 20200624
